FAERS Safety Report 20560054 (Version 1)
Quarter: 2022Q1

REPORT INFORMATION
  Report Type: Spontaneous
  Country: CA (occurrence: CA)
  Receive Date: 20220307
  Receipt Date: 20220307
  Transmission Date: 20220423
  Serious: Yes (Other)
  Sender: FDA-Public Use
  Company Number: CA-PFIZER INC-202200314713

PATIENT
  Age: 36 Year
  Sex: Male
  Weight: 102 kg

DRUGS (7)
  1. BOSULIF [Suspect]
     Active Substance: BOSUTINIB MONOHYDRATE
     Indication: Chronic myeloid leukaemia
     Dosage: 500 MG
     Route: 048
  2. BOSULIF [Suspect]
     Active Substance: BOSUTINIB MONOHYDRATE
     Dosage: 300 MG, 1X/DAY
     Route: 048
  3. BOSULIF [Suspect]
     Active Substance: BOSUTINIB MONOHYDRATE
     Dosage: UNK
     Route: 065
  4. DASATINIB [Suspect]
     Active Substance: DASATINIB
     Indication: Chronic myeloid leukaemia
     Dosage: 100 MG
     Route: 065
  5. DASATINIB [Suspect]
     Active Substance: DASATINIB
     Dosage: 50 MG, 1X/DAY
     Route: 065
  6. IMATINIB [Suspect]
     Active Substance: IMATINIB
     Indication: Chronic myeloid leukaemia
     Dosage: 400 MG, 1X/DAY
     Route: 065
  7. NILOTINIB [Suspect]
     Active Substance: NILOTINIB
     Indication: Chronic myeloid leukaemia
     Dosage: 400 MG, 2X/DAY
     Route: 065

REACTIONS (6)
  - Nausea [Unknown]
  - Pleural effusion [Unknown]
  - Weight decreased [Unknown]
  - Neoplasm progression [Unknown]
  - Circumstance or information capable of leading to medication error [Unknown]
  - Intercepted product prescribing error [Unknown]
